FAERS Safety Report 15181668 (Version 1)
Quarter: 2018Q3

REPORT INFORMATION
  Report Type: Report from Study
  Country: AU (occurrence: AU)
  Receive Date: 20180723
  Receipt Date: 20180723
  Transmission Date: 20181010
  Serious: No
  Sender: FDA-Public Use
  Company Number: AU-SA-2015SA135039

PATIENT
  Age: 27 Year
  Sex: Female

DRUGS (6)
  1. FEXOFENADINE [Concomitant]
     Active Substance: FEXOFENADINE\FEXOFENADINE HYDROCHLORIDE
     Indication: PROPHYLAXIS
     Dosage: 120 MG,QD
     Route: 048
     Dates: start: 2001
  2. SALBUTAMOL [Concomitant]
     Active Substance: ALBUTEROL
     Dosage: 600 UG,QD
     Route: 055
     Dates: start: 1997
  3. FLUTICASONE. [Concomitant]
     Active Substance: FLUTICASONE
     Dosage: 88 UG,QD
     Route: 055
     Dates: start: 1997
  4. ALEMTUZUMAB [Suspect]
     Active Substance: ALEMTUZUMAB
     Dosage: 12 MG,QD
     Route: 041
     Dates: start: 20160627, end: 20160629
  5. ALEMTUZUMAB [Suspect]
     Active Substance: ALEMTUZUMAB
     Indication: MULTIPLE SCLEROSIS RELAPSE
     Dosage: 12 MG,QD
     Route: 041
     Dates: start: 20150615, end: 20150619
  6. DEPO?PROVERA [Concomitant]
     Active Substance: MEDROXYPROGESTERONE ACETATE
     Indication: PROPHYLAXIS
     Dosage: 150 MG,QD
     Route: 030
     Dates: start: 201408

REACTIONS (13)
  - Nausea [Recovered/Resolved]
  - Muscular weakness [Not Recovered/Not Resolved]
  - Herpes zoster [Recovered/Resolved]
  - Headache [Recovered/Resolved]
  - Cyst [Recovering/Resolving]
  - Liver function test abnormal [Recovered/Resolved]
  - Fatigue [Recovered/Resolved]
  - Bladder spasm [Recovered/Resolved]
  - Furuncle [Recovered/Resolved]
  - Vision blurred [Recovered/Resolved]
  - Rash [Recovered/Resolved]
  - Lower respiratory tract infection [Recovered/Resolved]
  - Hypersensitivity [Not Recovered/Not Resolved]

NARRATIVE: CASE EVENT DATE: 20150615
